FAERS Safety Report 12606909 (Version 1)
Quarter: 2016Q3

REPORT INFORMATION
  Report Type: Report from Study
  Country: US (occurrence: US)
  Receive Date: 20160729
  Receipt Date: 20160729
  Transmission Date: 20161109
  Serious: Yes (Other)
  Sender: FDA-Public Use
  Company Number: US-ABBVIE-16P-163-1687704-00

PATIENT
  Sex: Male

DRUGS (4)
  1. DEPAKOTE [Suspect]
     Active Substance: DIVALPROEX SODIUM
     Indication: PRODUCT USED FOR UNKNOWN INDICATION
     Route: 048
  2. GABAPENTIN. [Concomitant]
     Active Substance: GABAPENTIN
     Indication: PRODUCT USED FOR UNKNOWN INDICATION
  3. DICLOFENAC SODIUM. [Concomitant]
     Active Substance: DICLOFENAC SODIUM
     Indication: PRODUCT USED FOR UNKNOWN INDICATION
  4. SILVADENE [Concomitant]
     Active Substance: SILVER SULFADIAZINE
     Indication: PRODUCT USED FOR UNKNOWN INDICATION

REACTIONS (14)
  - Lumbar radiculopathy [Unknown]
  - Proteinuria [Unknown]
  - Back pain [Unknown]
  - Limb injury [Unknown]
  - Hyperlipidaemia [Unknown]
  - Anxiety disorder [Unknown]
  - Nocturia [Unknown]
  - Depression [Unknown]
  - Hypertension [Unknown]
  - Seizure [Unknown]
  - Dizziness [Unknown]
  - Bipolar disorder [Unknown]
  - Urinary tract infection [Unknown]
  - Overweight [Unknown]
